FAERS Safety Report 8284696 (Version 5)
Quarter: 2019Q1

REPORT INFORMATION
  Report Type: Spontaneous
  Country: SE (occurrence: SE)
  Receive Date: 20111212
  Receipt Date: 20190206
  Transmission Date: 20190418
  Serious: Yes (Death, Life-Threatening, Hospitalization)
  Sender: FDA-Public Use
  Company Number: SE-ASTRAZENECA-2011SE74281

PATIENT
  Age: 20597 Day
  Sex: Male

DRUGS (9)
  1. SALAZOPYRIN [Concomitant]
     Active Substance: SULFASALAZINE
  2. HUMIRA [Concomitant]
     Active Substance: ADALIMUMAB
  3. REMICADE [Concomitant]
     Active Substance: INFLIXIMAB
     Dates: start: 2008
  4. CRESTOR [Suspect]
     Active Substance: ROSUVASTATIN CALCIUM
     Indication: ILL-DEFINED DISORDER
     Route: 048
     Dates: start: 20111003, end: 20111029
  5. PRONAXEN (NON AZ PRODUCT) [Suspect]
     Active Substance: NAPROXEN
     Indication: ILL-DEFINED DISORDER
     Route: 065
  6. METOPROLOL. [Suspect]
     Active Substance: METOPROLOL
     Indication: ILL-DEFINED DISORDER
     Route: 065
  7. SIMPONI [Suspect]
     Active Substance: GOLIMUMAB
     Indication: ANKYLOSING SPONDYLITIS
     Route: 058
     Dates: start: 20111003
  8. ENBREL [Concomitant]
     Active Substance: ETANERCEPT
  9. PRONAXEN (NON AZ PRODUCT) [Suspect]
     Active Substance: NAPROXEN
     Indication: ILL-DEFINED DISORDER
     Route: 065

REACTIONS (11)
  - Presyncope [Fatal]
  - Cholecystitis [Fatal]
  - Rash generalised [None]
  - Cardiac failure acute [None]
  - Blister [None]
  - Presyncope [Unknown]
  - Myocardial infarction [None]
  - General physical health deterioration [None]
  - Cardiac failure acute [Fatal]
  - Sepsis [None]
  - Post procedural complication [None]

NARRATIVE: CASE EVENT DATE: 20111003
